FAERS Safety Report 14015828 (Version 1)
Quarter: 2017Q3

REPORT INFORMATION
  Report Type: Spontaneous
  Country: US (occurrence: US)
  Receive Date: 20170927
  Receipt Date: 20170927
  Transmission Date: 20171128
  Serious: Yes (Life-Threatening)
  Sender: FDA-Public Use
  Company Number: US-PFIZER INC-2017416999

PATIENT
  Age: 49 Year
  Sex: Female

DRUGS (1)
  1. CELEBREX [Suspect]
     Active Substance: CELECOXIB
     Dosage: UNK

REACTIONS (11)
  - Migraine [Unknown]
  - Vertigo [Unknown]
  - Ischaemic stroke [Unknown]
  - Photophobia [Unknown]
  - Hyperacusis [Unknown]
  - Arrhythmia [Unknown]
  - Heart rate irregular [Unknown]
  - Tachycardia [Unknown]
  - Amnesia [Unknown]
  - Blood pressure inadequately controlled [Unknown]
  - Post procedural complication [Unknown]
